FAERS Safety Report 25195722 (Version 2)
Quarter: 2025Q2

REPORT INFORMATION
  Report Type: Spontaneous
  Country: US (occurrence: US)
  Receive Date: 20250415
  Receipt Date: 20250527
  Transmission Date: 20250716
  Serious: No
  Sender: SANOFI AVENTIS
  Company Number: US-SA-2025SA104640

PATIENT
  Age: 63 Year
  Sex: Female

DRUGS (6)
  1. KEVZARA [Suspect]
     Active Substance: SARILUMAB
     Indication: Polymyalgia rheumatica
     Dosage: 200 MG, QOW
     Route: 058
     Dates: start: 20250330
  2. VITAMIN D3 [Concomitant]
     Active Substance: CHOLECALCIFEROL
  3. SAMBUCUS NIGRA [Concomitant]
     Active Substance: HOMEOPATHICS
  4. LOSARTAN POTASSIUM [Concomitant]
     Active Substance: LOSARTAN POTASSIUM
  5. PREDNISONE [Concomitant]
     Active Substance: PREDNISONE
  6. CALCIUM [Concomitant]
     Active Substance: CALCIUM

REACTIONS (2)
  - Abdominal distension [Not Recovered/Not Resolved]
  - Diarrhoea [Not Recovered/Not Resolved]

NARRATIVE: CASE EVENT DATE: 20250330
